FAERS Safety Report 8027892-1 (Version None)
Quarter: 2012Q1

REPORT INFORMATION
  Report Type: 
  Country: None (occurrence: None)
  Receive Date: 20120106
  Receipt Date: 20120104
  Transmission Date: 20120608
  Serious: Yes (Life-Threatening, Other)
  Sender: FDA-Public Use
  Company Number: US-PFIZER INC-2012003760

PATIENT
  Sex: Female
  Weight: 50 kg

DRUGS (13)
  1. PREDNISONE [Suspect]
     Dosage: UNK
  2. CHANTIX [Suspect]
     Indication: SMOKING CESSATION THERAPY
     Dosage: UNK
  3. CYMBALTA [Concomitant]
     Indication: DEPRESSION
     Dosage: 60 MG, UNK
  4. SIMVASTATIN [Concomitant]
     Indication: BLOOD CHOLESTEROL INCREASED
     Dosage: 20 MG, UNK
  5. LEUCOVORIN CALCIUM [Concomitant]
     Indication: DRUG TOXICITY PROPHYLAXIS
     Dosage: 5 MG, DAILY
  6. CARISOPRODOL [Suspect]
     Indication: MUSCLE SPASMS
     Dosage: 350 MG, DAILY
  7. METHOTREXATE [Concomitant]
     Indication: SYSTEMIC LUPUS ERYTHEMATOSUS
     Dosage: 2.5 MG, WEEKLY
  8. FOLIC ACID [Concomitant]
     Indication: FOLATE DEFICIENCY
     Dosage: 1 MG, DAILY
  9. GABAPENTIN [Concomitant]
     Indication: SYSTEMIC LUPUS ERYTHEMATOSUS
     Dosage: 800 MG, DAILY
  10. LEVOTHYROXINE [Concomitant]
     Indication: RADIATION SICKNESS SYNDROME
     Dosage: 100 UG, UNK
  11. METHADONE [Concomitant]
     Indication: NEURALGIA
     Dosage: 10 MG, AS NEEDED
  12. PLAQUENIL [Concomitant]
     Indication: SYSTEMIC LUPUS ERYTHEMATOSUS
     Dosage: 200 MG, DAILY
  13. LEVOTHYROXINE [Concomitant]
     Indication: THYROID DISORDER

REACTIONS (6)
  - EXOSTOSIS [None]
  - BONE DENSITY DECREASED [None]
  - DRUG INTOLERANCE [None]
  - MUSCLE SPASMS [None]
  - SPINAL CORD INJURY [None]
  - NEOPLASM MALIGNANT [None]
